FAERS Safety Report 10583608 (Version 2)
Quarter: 2014Q4

REPORT INFORMATION
  Report Type: Spontaneous
  Country: JP (occurrence: JP)
  Receive Date: 20141114
  Receipt Date: 20141231
  Transmission Date: 20150529
  Serious: Yes (Death, Congenital Anomaly, Other)
  Sender: FDA-Public Use
  Company Number: PHHY2014JP146950

PATIENT
  Age: 55 Year
  Sex: Male
  Weight: 56 kg

DRUGS (10)
  1. FOY [Concomitant]
     Active Substance: GABEXATE MESYLATE
     Indication: PRODUCT USED FOR UNKNOWN INDICATION
     Route: 065
  2. PENTAGIN [Concomitant]
     Active Substance: PENTAZOCINE HYDROCHLORIDE
     Indication: ANALGESIC THERAPY
     Dosage: 15 MG, UNK
     Route: 030
     Dates: start: 20060823, end: 20060823
  3. SALINE [Concomitant]
     Active Substance: SODIUM CHLORIDE
     Indication: PRODUCT USED FOR UNKNOWN INDICATION
     Dosage: 100 ML, UNK
     Route: 042
  4. VOLTAREN [Suspect]
     Active Substance: DICLOFENAC SODIUM
     Indication: ANTIPYRESIS
     Dosage: 50 MG, UNK
     Route: 054
  5. VASOLAN [Concomitant]
     Active Substance: VERAPAMIL HYDROCHLORIDE
     Indication: TACHYCARDIA
     Dosage: 1 DF, UNK
     Route: 042
     Dates: start: 20060825, end: 20060825
  6. ROPION [Concomitant]
     Active Substance: FLURBIPROFEN AXETIL
     Indication: ANALGESIC THERAPY
     Dosage: 3 DF, UNK
     Route: 042
     Dates: start: 20060823, end: 20060824
  7. VOLTAREN [Suspect]
     Active Substance: DICLOFENAC SODIUM
     Indication: ANALGESIC THERAPY
     Dosage: 100 MG, QD
     Route: 054
     Dates: start: 20060824, end: 20060824
  8. REMINARON [Concomitant]
     Active Substance: GABEXATE MESYLATE
     Indication: PRODUCT USED FOR UNKNOWN INDICATION
     Route: 065
  9. FUTHAN [Concomitant]
     Active Substance: NAFAMOSTAT MESYLATE
     Indication: PRODUCT USED FOR UNKNOWN INDICATION
     Route: 065
  10. PRIMPERAN [Concomitant]
     Active Substance: METOCLOPRAMIDE HYDROCHLORIDE
     Indication: NAUSEA
     Dosage: 1 DF, UNK
     Route: 042
     Dates: start: 20060823, end: 20060823

REACTIONS (44)
  - Retroperitoneal abscess [Fatal]
  - Pancreatitis acute [Fatal]
  - Infrequent bowel movements [Fatal]
  - Creatinine renal clearance increased [Unknown]
  - Acute respiratory distress syndrome [Unknown]
  - Dyspnoea [Unknown]
  - Pyrexia [Unknown]
  - Hypotension [Unknown]
  - Abdominal abscess [Fatal]
  - Inflammation [Fatal]
  - Tenderness [Fatal]
  - Pleural effusion [Unknown]
  - Obstructive airways disorder [Unknown]
  - Blood creatinine increased [Unknown]
  - Pallor [Unknown]
  - Cyanosis [Unknown]
  - Cough [Unknown]
  - Urosepsis [Fatal]
  - Abdominal distension [Fatal]
  - Cholelithiasis [Unknown]
  - Hypercatabolism [Unknown]
  - Cystitis [Unknown]
  - Pancreatitis haemorrhagic [Fatal]
  - Abdominal pain upper [Fatal]
  - Intra-abdominal pressure increased [Fatal]
  - Biliary dilatation [Unknown]
  - Infection [Unknown]
  - Pneumonia [Unknown]
  - Pneumonia aspiration [Unknown]
  - Anaemia [Unknown]
  - Ascites [Fatal]
  - Multi-organ failure [Unknown]
  - Unresponsive to stimuli [Unknown]
  - Pancreatitis necrotising [Fatal]
  - Localised intraabdominal fluid collection [Fatal]
  - Cardio-respiratory arrest [Unknown]
  - Blood urea increased [Unknown]
  - Malnutrition [Unknown]
  - Blood pressure increased [Unknown]
  - Abdominal pain [Fatal]
  - Vomiting [Fatal]
  - Flatulence [Fatal]
  - Asthenia [Unknown]
  - Gastrointestinal haemorrhage [Unknown]

NARRATIVE: CASE EVENT DATE: 20060824
